FAERS Safety Report 5024427-2 (Version None)
Quarter: 2006Q2

REPORT INFORMATION
  Report Type: 
  Country: None (occurrence: None)
  Receive Date: 20060613
  Receipt Date: 20030324
  Transmission Date: 20061013
  Serious: Yes (Other)
  Sender: FDA-Public Use
  Company Number: PHFR2003GB01508

PATIENT
  Age: 34 Year
  Sex: Male

DRUGS (1)
  1. CLOZARIL [Suspect]
     Indication: SCHIZOPHRENIA
     Dosage: UNK, UNK
     Route: 048
     Dates: start: 20030129, end: 20030401

REACTIONS (9)
  - DIABETES MELLITUS [None]
  - HYPERGLYCAEMIA [None]
  - HYPERSOMNIA [None]
  - KETOACIDOSIS [None]
  - LETHARGY [None]
  - MALAISE [None]
  - POLLAKIURIA [None]
  - THIRST [None]
  - WEIGHT DECREASED [None]
